FAERS Safety Report 6290945-2 (Version None)
Quarter: 2009Q3

REPORT INFORMATION
  Report Type: 
  Country: None (occurrence: None)
  Receive Date: 20090730
  Receipt Date: 20090720
  Transmission Date: 20100115
  Serious: Yes (Death)
  Sender: FDA-Public Use
  Company Number: PE-PFIZER INC-2009245120

PATIENT
  Age: 85 Year

DRUGS (1)
  1. NORVASTOR [Suspect]
     Route: 048
     Dates: start: 20080317, end: 20090619

REACTIONS (1)
  - DEATH [None]
